FAERS Safety Report 7079290-5 (Version None)
Quarter: 2010Q4

REPORT INFORMATION
  Report Type: 
  Country: None (occurrence: None)
  Receive Date: 20101102
  Receipt Date: 20101025
  Transmission Date: 20110411
  Serious: Yes (Other)
  Sender: FDA-Public Use
  Company Number: US-SANOFI-AVENTIS-2010SA062321

PATIENT
  Age: 53 Year
  Sex: Female

DRUGS (2)
  1. LANTUS [Suspect]
     Dosage: 10 TO 12 UNITS IN THE MORNING AND THE EVENING
     Route: 058
     Dates: start: 20000101
  2. LANTUS [Suspect]
     Dosage: 16 TO 18 UNITS IN THE MORNING AND THE EVENING
     Route: 058

REACTIONS (4)
  - BLOOD GLUCOSE DECREASED [None]
  - BLOOD GLUCOSE INCREASED [None]
  - DRUG INEFFECTIVE [None]
  - MULTIPLE FRACTURES [None]
